FAERS Safety Report 15849176 (Version 2)
Quarter: 2019Q1

REPORT INFORMATION
  Report Type: Spontaneous
  Country: FR (occurrence: FR)
  Receive Date: 20190121
  Receipt Date: 20190129
  Transmission Date: 20190417
  Serious: Yes (Other)
  Sender: FDA-Public Use
  Company Number: FR-MYLANLABS-2019M1003827

PATIENT
  Age: 55 Year
  Sex: Male

DRUGS (5)
  1. RITUXIMAB. [Suspect]
     Active Substance: RITUXIMAB
     Indication: LYMPHADENOPATHY
     Dosage: 375 MILLIGRAM/SQ. METER
     Route: 058
     Dates: start: 201506, end: 201512
  2. MESALAZINE [Suspect]
     Active Substance: MESALAMINE
     Indication: COLITIS ULCERATIVE
     Dosage: 2 G, QD
     Route: 065
     Dates: start: 201609
  3. RITUXIMAB. [Suspect]
     Active Substance: RITUXIMAB
     Indication: B-CELL LYMPHOMA
     Dosage: UNK, Q 2 MONTHS
     Route: 058
     Dates: start: 201512, end: 201610
  4. BENDAMUSTINE HYDROCHLORIDE. [Suspect]
     Active Substance: BENDAMUSTINE HYDROCHLORIDE
     Indication: B-CELL LYMPHOMA
  5. BENDAMUSTINE HYDROCHLORIDE. [Suspect]
     Active Substance: BENDAMUSTINE HYDROCHLORIDE
     Indication: LYMPHADENOPATHY
     Dosage: 90 MILLIGRAM/SQ. METER (SIX MONTHLY CYCLES)
     Route: 065
     Dates: start: 201506

REACTIONS (4)
  - Acute lung injury [Unknown]
  - Product prescribing error [Unknown]
  - Incorrect dose administered [Unknown]
  - Kaposi^s sarcoma [Recovered/Resolved]

NARRATIVE: CASE EVENT DATE: 201610
